FAERS Safety Report 23015825 (Version 1)
Quarter: 2023Q4

REPORT INFORMATION
  Report Type: Spontaneous
  Country: US (occurrence: US)
  Receive Date: 20231002
  Receipt Date: 20231002
  Transmission Date: 20240110
  Serious: Yes (Death, Other)
  Sender: FDA-Public Use
  Company Number: US-AMGEN-USASP2023170029

PATIENT

DRUGS (3)
  1. CARFILZOMIB [Suspect]
     Active Substance: CARFILZOMIB
     Indication: Plasma cell myeloma refractory
     Dosage: UNK, D1, 2, 8, 9, 15,16 EACH 28- CYC (20 MG/M^2 ON D1 2 OF CYC 1,56 MG/M^2
     Route: 065
  2. DEXAMETHASONE [Suspect]
     Active Substance: DEXAMETHASONE
     Indication: Plasma cell myeloma refractory
     Dosage: UNK, ORAL/IV INFUSION WEEKLY AT 40 MG (20 MG FOR PATIENTS AGED }75 YEARS)
     Route: 065
  3. DARATUMUMAB [Suspect]
     Active Substance: DARATUMUMAB
     Indication: Plasma cell myeloma refractory
     Dosage: UNK, INFUSION 8MG/KG ON D1,2 OF C1, 16 MG/KG QW REMAIN DOSES OF 1ST 2 C THEN Q2W 4 C (C3-6) THEN Q4W
     Route: 042

REACTIONS (33)
  - Death [Fatal]
  - Cardiac disorder [Fatal]
  - Acinetobacter infection [Fatal]
  - COVID-19 [Fatal]
  - COVID-19 pneumonia [Fatal]
  - Infection [Fatal]
  - Cardio-respiratory arrest [Fatal]
  - Pneumonia [Fatal]
  - Plasma cell myeloma [Fatal]
  - Sepsis [Fatal]
  - Septic shock [Fatal]
  - Infestation [Unknown]
  - Lymphopenia [Unknown]
  - Upper respiratory tract infection [Unknown]
  - Insomnia [Unknown]
  - Thrombocytopenia [Unknown]
  - Anaemia [Unknown]
  - Neutropenia [Unknown]
  - Diarrhoea [Unknown]
  - Hypertension [Unknown]
  - Fatigue [Unknown]
  - Dyspnoea [Unknown]
  - Pyrexia [Unknown]
  - Back pain [Unknown]
  - Nausea [Unknown]
  - Hyperglycaemia [Unknown]
  - Cataract [Unknown]
  - Respiratory tract infection [Unknown]
  - Infusion related reaction [Unknown]
  - Neuropathy peripheral [Unknown]
  - Cardiac failure [Unknown]
  - Acute kidney injury [Unknown]
  - Myocardial ischaemia [Unknown]
